FAERS Safety Report 16762941 (Version 3)
Quarter: 2019Q4

REPORT INFORMATION
  Report Type: Spontaneous
  Country: US (occurrence: US)
  Receive Date: 20190902
  Receipt Date: 20191106
  Transmission Date: 20200122
  Serious: Yes (Other)
  Sender: FDA-Public Use
  Company Number: US-UCBSA-2019036255

PATIENT
  Age: 56 Year
  Sex: Male
  Weight: 88.5 kg

DRUGS (16)
  1. CIMZIA [Suspect]
     Active Substance: CERTOLIZUMAB PEGOL
     Indication: RHEUMATOID ARTHRITIS
     Dosage: 200 MILLIGRAM, EV 2 WEEKS(QOW)
     Route: 058
     Dates: start: 20160609, end: 201904
  2. METHOTREXATE. [Concomitant]
     Active Substance: METHOTREXATE
  3. ASPIR 81 [Concomitant]
     Active Substance: ASPIRIN
  4. MEDROL [Concomitant]
     Active Substance: METHYLPREDNISOLONE
  5. LEFLUNOMIDE. [Concomitant]
     Active Substance: LEFLUNOMIDE
  6. SODIUM CHLORIDE. [Concomitant]
     Active Substance: SODIUM CHLORIDE
  7. FLOMAX [Concomitant]
     Active Substance: TAMSULOSIN HYDROCHLORIDE
  8. DESYREL [Concomitant]
     Active Substance: TRAZODONE HYDROCHLORIDE
  9. SULFASALAZINE. [Concomitant]
     Active Substance: SULFASALAZINE
  10. BREO ELLIPTA [Concomitant]
     Active Substance: FLUTICASONE FUROATE\VILANTEROL TRIFENATATE
  11. IBUPROFEN. [Concomitant]
     Active Substance: IBUPROFEN
  12. VIAGRA [Concomitant]
     Active Substance: SILDENAFIL CITRATE
  13. PREDNISONE. [Concomitant]
     Active Substance: PREDNISONE
  14. XANAX [Concomitant]
     Active Substance: ALPRAZOLAM
  15. LIPITOR [Concomitant]
     Active Substance: ATORVASTATIN CALCIUM
  16. XELJANZ XR [Concomitant]
     Active Substance: TOFACITINIB CITRATE

REACTIONS (5)
  - Overweight [Unknown]
  - Viral upper respiratory tract infection [Unknown]
  - Pancreatitis [Not Recovered/Not Resolved]
  - Cataract [Unknown]
  - Drug ineffective [Unknown]

NARRATIVE: CASE EVENT DATE: 2019
